FAERS Safety Report 8886852 (Version 1)
Quarter: 2012Q4

REPORT INFORMATION
  Report Type: 
  Country: US (occurrence: US)
  Receive Date: 20121105
  Receipt Date: 20121105
  Transmission Date: 20130627
  Serious: No
  Sender: FDA-Public Use
  Company Number: US-009507513-1210USA009911

PATIENT
  Age: 54 Year
  Sex: Male
  Weight: 67.12 kg

DRUGS (4)
  1. PEGINTRON [Suspect]
     Dosage: 120 mcg/0.5 ml
     Route: 058
  2. RIBAPAK [Suspect]
     Dosage: 600/day
     Route: 048
  3. VICTRELIS [Suspect]
     Dosage: 200 mg, UNK
     Route: 048
  4. VITAMINS (UNSPECIFIED) [Concomitant]
     Route: 048

REACTIONS (2)
  - Rash pruritic [Unknown]
  - Dysgeusia [Unknown]
